FAERS Safety Report 17315525 (Version 3)
Quarter: 2020Q2

REPORT INFORMATION
  Report Type: Spontaneous
  Country: JP (occurrence: JP)
  Receive Date: 20200124
  Receipt Date: 20200415
  Transmission Date: 20200713
  Serious: Yes (Hospitalization, Other)
  Sender: FDA-Public Use
  Company Number: JP-ASTRAZENECA-2019SF71970

PATIENT
  Age: 80 Year
  Sex: Male

DRUGS (1)
  1. IMFINZI [Suspect]
     Active Substance: DURVALUMAB
     Indication: NON-SMALL CELL LUNG CANCER
     Route: 041
     Dates: start: 20191106, end: 20191106

REACTIONS (7)
  - Metastases to central nervous system [Unknown]
  - Squamous cell carcinoma [Unknown]
  - Pneumonitis [Recovering/Resolving]
  - Malignant transformation [Unknown]
  - Pyrexia [Recovered/Resolved]
  - Physical deconditioning [Unknown]
  - Lung adenocarcinoma recurrent [Unknown]

NARRATIVE: CASE EVENT DATE: 20191106
